FAERS Safety Report 15461590 (Version 1)
Quarter: 2018Q4

REPORT INFORMATION
  Report Type: Spontaneous
  Country: BR (occurrence: BR)
  Receive Date: 20181003
  Receipt Date: 20181003
  Transmission Date: 20190204
  Serious: Yes (Other)
  Sender: FDA-Public Use
  Company Number: BR-SHIRE-BR201836737

PATIENT

DRUGS (1)
  1. ONCASPAR [Suspect]
     Active Substance: PEGASPARGASE
     Indication: ACUTE LYMPHOCYTIC LEUKAEMIA
     Dosage: 1250 IU, UNK
     Route: 065

REACTIONS (9)
  - Pruritus [Unknown]
  - Oxygen saturation decreased [Unknown]
  - Urethral disorder [Unknown]
  - Strabismus [Unknown]
  - Bradycardia [Unknown]
  - Cough [Unknown]
  - Syncope [Unknown]
  - Perineal erythema [Unknown]
  - Pallor [Unknown]

NARRATIVE: CASE EVENT DATE: 20180816
